FAERS Safety Report 9684141 (Version 1)
Quarter: 2013Q4

REPORT INFORMATION
  Report Type: Spontaneous
  Country: US (occurrence: None)
  Receive Date: 20131111
  Receipt Date: 20131111
  Transmission Date: 20140711
  Serious: No
  Sender: FDA-Public Use
  Company Number: None

PATIENT
  Age: 64 Year
  Sex: Female
  Weight: 52.62 kg

DRUGS (1)
  1. RESTASIS [Suspect]
     Indication: DRY EYE
     Dosage: 1 DROP IN EACH EYE, TWICE DAILY, INTO THE EYE
     Dates: start: 20130101, end: 20131105

REACTIONS (9)
  - Pain [None]
  - Eye pruritus [None]
  - Eye irritation [None]
  - Eye inflammation [None]
  - Eyelid pain [None]
  - Eyelid irritation [None]
  - Eyelids pruritus [None]
  - Insomnia [None]
  - Feeling abnormal [None]
